FAERS Safety Report 7612050-2 (Version None)
Quarter: 2011Q3

REPORT INFORMATION
  Report Type: 
  Country: None (occurrence: None)
  Receive Date: 20110715
  Receipt Date: 20110707
  Transmission Date: 20111222
  Serious: Yes (Other)
  Sender: FDA-Public Use
  Company Number: US-ABBOTT-11P-163-0837005-00

PATIENT
  Age: 61 Year
  Sex: Female
  Weight: 79.4 kg

DRUGS (13)
  1. VICODIN [Suspect]
     Indication: PAIN IN EXTREMITY
     Route: 048
  2. CIPROFLOXACIN [Suspect]
     Indication: PAIN IN EXTREMITY
  3. PREGABALIN [Suspect]
     Indication: HYPOAESTHESIA
  4. PREGABALIN [Suspect]
     Indication: FIBROMYALGIA
  5. PREGABALIN [Suspect]
     Indication: NERVE INJURY
  6. DARVOCET-N 50 [Suspect]
     Indication: PAIN IN EXTREMITY
     Route: 048
  7. TYLENOL-500 [Suspect]
     Indication: PAIN IN EXTREMITY
  8. PREGABALIN [Suspect]
     Indication: PAIN IN EXTREMITY
  9. ACETYLSALICYLIC ACID SRT [Concomitant]
     Indication: PRODUCT USED FOR UNKNOWN INDICATION
  10. CODEINE SULFATE [Suspect]
     Indication: PAIN IN EXTREMITY
  11. FUROSEMIDE [Suspect]
     Indication: PAIN IN EXTREMITY
     Route: 048
  12. KEFLEX [Concomitant]
     Indication: PRODUCT USED FOR UNKNOWN INDICATION
  13. CENTRUM [Concomitant]
     Indication: PRODUCT USED FOR UNKNOWN INDICATION

REACTIONS (10)
  - PAIN [None]
  - BACTERIAL INFECTION [None]
  - NAUSEA [None]
  - ALOPECIA [None]
  - WEIGHT DECREASED [None]
  - SWELLING [None]
  - MALAISE [None]
  - HYPOPHAGIA [None]
  - RASH [None]
  - DEPRESSION [None]
